FAERS Safety Report 19484810 (Version 1)
Quarter: 2021Q3

REPORT INFORMATION
  Report Type: Spontaneous
  Country: US (occurrence: US)
  Receive Date: 20210701
  Receipt Date: 20210701
  Transmission Date: 20211014
  Serious: No
  Sender: FDA-Public Use
  Company Number: US-TEVA-2021-US-1928925

PATIENT
  Age: 56 Year
  Sex: Female

DRUGS (1)
  1. AUSTEDO [Suspect]
     Active Substance: DEUTETRABENAZINE
     Indication: PRODUCT USED FOR UNKNOWN INDICATION
     Dosage: DOSE: 6 MG, FREQUENCY:DAILY
     Route: 048
     Dates: start: 202106

REACTIONS (6)
  - Hypersensitivity [Unknown]
  - Joint stiffness [Not Recovered/Not Resolved]
  - Restlessness [Unknown]
  - Anxiety [Unknown]
  - Malaise [Unknown]
  - Rhinorrhoea [Unknown]

NARRATIVE: CASE EVENT DATE: 202106
